FAERS Safety Report 17994403 (Version 7)
Quarter: 2021Q1

REPORT INFORMATION
  Report Type: Report from Study
  Country: US (occurrence: US)
  Receive Date: 20200708
  Receipt Date: 20210120
  Transmission Date: 20210419
  Serious: No
  Sender: FDA-Public Use
  Company Number: NVSC2020US192120

PATIENT
  Sex: Male

DRUGS (3)
  1. ENTRESTO [Suspect]
     Active Substance: SACUBITRIL\VALSARTAN
     Indication: CARDIAC FAILURE CHRONIC
     Dosage: UNK
     Route: 065
     Dates: start: 20200704, end: 20200713
  2. POTASSIUM [Interacting]
     Active Substance: POTASSIUM
     Indication: PRODUCT USED FOR UNKNOWN INDICATION
     Dosage: UNK
     Route: 065
  3. ENTRESTO [Interacting]
     Active Substance: SACUBITRIL\VALSARTAN
     Dosage: 100 MG, BID (49/51 MG)
     Route: 065
     Dates: start: 202008

REACTIONS (13)
  - Fluid retention [Recovering/Resolving]
  - Drug interaction [Recovered/Resolved]
  - Dizziness [Unknown]
  - Hepatic function abnormal [Unknown]
  - Blood potassium abnormal [Unknown]
  - Hypotension [Unknown]
  - Blood pressure abnormal [Unknown]
  - Vision blurred [Not Recovered/Not Resolved]
  - Weight increased [Unknown]
  - Cough [Unknown]
  - Throat clearing [Unknown]
  - Ejection fraction abnormal [Recovering/Resolving]
  - Product dose omission issue [Unknown]
